FAERS Safety Report 4757214-0 (Version None)
Quarter: 2005Q3

REPORT INFORMATION
  Report Type: 
  Country: None (occurrence: None)
  Receive Date: 20050829
  Receipt Date: 20050818
  Transmission Date: 20060218
  Serious: Yes (Hospitalization)
  Sender: FDA-Public Use
  Company Number: TPA2005A00947

PATIENT
  Age: 81 Year
  Sex: Female
  Weight: 52.1637 kg

DRUGS (15)
  1. ACTOS [Suspect]
     Indication: DIABETES MELLITUS NON-INSULIN-DEPENDENT
     Dosage: SEE IMAGE
     Route: 048
     Dates: start: 20010818
  2. DIGITEK (DIGOXIN )(- 0.125 MILLIGRAM) [Concomitant]
  3. SINGULAIR (MONTELUKAST) (10 MILLIGRAM) [Concomitant]
  4. LIPITOR (ATORVASTATIN) ( 10 MILLIGRAM) [Concomitant]
  5. COZAAR (LOSARTAN POTASSIUM ) (50 MILLIGRAM) [Concomitant]
  6. THEOPHILLINE (THEOPHYLLINE ) (200 MILLIGRAM) [Concomitant]
  7. BUMETANIDE (BUMETANIDE) (1 MILLIGRAM) [Concomitant]
  8. PREDNISONE (PREDNISONE) (5 MILLIGRAM) [Concomitant]
  9. LEVOXYL [Concomitant]
  10. MUCINEX (GUAIFENESIN) (600 MILLIGRAM) [Concomitant]
  11. HUMIBID (GUAIFENESIN) (TABLETS) [Concomitant]
  12. FLOVENT (FLAUTICAONSE PROPIONATE) (INHALANT) [Concomitant]
  13. SERVENT (SALMETEROL XINAFOATE) (INHALANT) [Concomitant]
  14. ALBUTEROL (SALBUTAMOL) (INHALANT) [Concomitant]
  15. ASPIRIN [Concomitant]

REACTIONS (2)
  - BLOOD GLUCOSE INCREASED [None]
  - HYPOTHYROIDISM [None]
